FAERS Safety Report 6153390-6 (Version None)
Quarter: 2009Q2

REPORT INFORMATION
  Report Type: 
  Country: None (occurrence: None)
  Receive Date: 20090413
  Receipt Date: 20090407
  Transmission Date: 20091009
  Serious: Yes (Disabling)
  Sender: FDA-Public Use
  Company Number: AU-B.I. PHARMACEUTICALS,INC./RIDGEFIELD-2009-BP-04392AU

PATIENT
  Sex: Female

DRUGS (1)
  1. MICARDIS [Suspect]

REACTIONS (6)
  - HYPERHIDROSIS [None]
  - MALAISE [None]
  - NAUSEA [None]
  - POISONING [None]
  - POLLAKIURIA [None]
  - RETCHING [None]
